FAERS Safety Report 15750163 (Version 1)
Quarter: 2018Q4

REPORT INFORMATION
  Report Type: Spontaneous
  Country: US (occurrence: US)
  Receive Date: 20181221
  Receipt Date: 20181221
  Transmission Date: 20190205
  Serious: Yes (Hospitalization)
  Sender: FDA-Public Use
  Company Number: US-BIOGEN-2015BI071111

PATIENT
  Age: 57 Year
  Sex: Female

DRUGS (3)
  1. TYSABRI [Suspect]
     Active Substance: NATALIZUMAB
     Indication: MULTIPLE SCLEROSIS
     Route: 042
     Dates: start: 20070328, end: 20070430
  2. TYSABRI [Suspect]
     Active Substance: NATALIZUMAB
     Route: 042
  3. REBIF [Concomitant]
     Active Substance: INTERFERON BETA-1A
     Indication: MULTIPLE SCLEROSIS
     Route: 065

REACTIONS (3)
  - Drug specific antibody present [Unknown]
  - Anaphylactic reaction [Recovered/Resolved]
  - Antibody test abnormal [Recovered/Resolved]

NARRATIVE: CASE EVENT DATE: 20070430
